FAERS Safety Report 6525587-4 (Version None)
Quarter: 2010Q1

REPORT INFORMATION
  Report Type: 
  Country: None (occurrence: None)
  Receive Date: 20100104
  Receipt Date: 20091223
  Transmission Date: 20100710
  Serious: Yes (Other)
  Sender: FDA-Public Use
  Company Number: US-PFIZER INC-2009314561

PATIENT
  Sex: Male
  Weight: 91 kg

DRUGS (3)
  1. SUTENT [Suspect]
     Indication: LUNG NEOPLASM
     Dosage: 50 MG, 1X/DAY, 28 DAYS CYCLE AND OFF FOR 14 DAYS
     Route: 048
     Dates: start: 20090401
  2. SUTENT [Suspect]
     Indication: NEOPLASM
  3. PRILOSEC [Concomitant]
     Indication: GASTROOESOPHAGEAL REFLUX DISEASE
     Dosage: 50 MG, 1X/DAY

REACTIONS (5)
  - DISEASE PROGRESSION [None]
  - LOWER LIMB FRACTURE [None]
  - NAUSEA [None]
  - NEOPLASM [None]
  - RASH [None]
